FAERS Safety Report 17174878 (Version 1)
Quarter: 2019Q4

REPORT INFORMATION
  Report Type: Spontaneous
  Country: US (occurrence: US)
  Receive Date: 20191219
  Receipt Date: 20191219
  Transmission Date: 20200122
  Serious: No
  Sender: FDA-Public Use
  Company Number: US-UCBSA-118949

PATIENT
  Age: 58 Year
  Sex: Female
  Weight: 49.09 kg

DRUGS (4)
  1. CIMZIA [Suspect]
     Active Substance: CERTOLIZUMAB PEGOL
     Indication: CROHN^S DISEASE
     Dosage: ONCE EVERY 30 DAYS - SECOND FRIDAY OF EACH MONTH.
     Route: 058
  2. VICODIN [Concomitant]
     Active Substance: ACETAMINOPHEN\HYDROCODONE BITARTRATE
     Dosage: UNK UNK, AS NEEDED (PRN)
  3. KETOCONAZOLE. [Concomitant]
     Active Substance: KETOCONAZOLE
     Dosage: 200 MG, ONCE DAILY (QD)
  4. XANAX [Concomitant]
     Active Substance: ALPRAZOLAM
     Dosage: UNK UNK, AS NEEDED (PRN)

REACTIONS (3)
  - Hypoaesthesia oral [Recovered/Resolved]
  - Fungal infection [Recovering/Resolving]
  - Flatulence [Recovered/Resolved]

NARRATIVE: CASE EVENT DATE: 2012
